FAERS Safety Report 4462359-9 (Version None)
Quarter: 2004Q3

REPORT INFORMATION
  Report Type: 
  Country: None (occurrence: None)
  Receive Date: 20040924
  Receipt Date: 20040917
  Transmission Date: 20050211
  Serious: Yes (Other)
  Sender: FDA-Public Use
  Company Number: 200411296BCC

PATIENT
  Age: 43 Year
  Sex: Female
  Weight: 111.1313 kg

DRUGS (3)
  1. ASPIRIN [Suspect]
     Indication: MIGRAINE
     Dosage: SEE IMAGE
     Route: 048
  2. PROZAC [Concomitant]
  3. ALBUTEROL [Concomitant]

REACTIONS (6)
  - ASTHMA [None]
  - DYSPNOEA [None]
  - LUNG DISORDER [None]
  - WEIGHT DECREASED [None]
  - WEIGHT LOSS DIET [None]
  - WHEEZING [None]
